FAERS Safety Report 4468688-7 (Version None)
Quarter: 2004Q4

REPORT INFORMATION
  Report Type: 
  Country: None (occurrence: None)
  Receive Date: 20041007
  Receipt Date: 20041001
  Transmission Date: 20050328
  Serious: Yes (Hospitalization)
  Sender: FDA-Public Use
  Company Number: BR-MERCK-0410BRA00011

PATIENT
  Age: 74 Year
  Sex: Female

DRUGS (4)
  1. CELECOXIB [Concomitant]
     Route: 048
  2. CHLORTHALIDONE [Concomitant]
     Route: 048
  3. VIOXX [Suspect]
     Indication: KNEE OPERATION
     Route: 048
     Dates: start: 20020101, end: 20040930
  4. VIOXX [Suspect]
     Indication: MENISCUS LESION
     Route: 048
     Dates: start: 20020101, end: 20040930

REACTIONS (3)
  - CHEST PAIN [None]
  - DYSPNOEA [None]
  - HEADACHE [None]
